FAERS Safety Report 5639689-8 (Version None)
Quarter: 2008Q1

REPORT INFORMATION
  Report Type: 
  Country: None (occurrence: None)
  Receive Date: 20080222
  Receipt Date: 20080207
  Transmission Date: 20080703
  Serious: Yes (Hospitalization)
  Sender: FDA-Public Use
  Company Number: 202914

PATIENT
  Age: 63 Year
  Sex: Female
  Weight: 74.8435 kg

DRUGS (4)
  1. AVONEX [Suspect]
     Indication: MULTIPLE SCLEROSIS
     Dosage: 30 UG; QW; IM
     Route: 030
     Dates: start: 19990701
  2. ALEVE [Concomitant]
  3. CALCIUM [Concomitant]
  4. TYLENOL (CAPLET) [Concomitant]

REACTIONS (6)
  - ANKLE FRACTURE [None]
  - ASTHENIA [None]
  - CONFUSIONAL STATE [None]
  - FALL [None]
  - JOINT DISLOCATION [None]
  - MULTIPLE SCLEROSIS [None]
